FAERS Safety Report 13627045 (Version 3)
Quarter: 2017Q2

REPORT INFORMATION
  Report Type: Report from Study
  Country: None (occurrence: US)
  Receive Date: 20170607
  Receipt Date: 20170613
  Transmission Date: 20170830
  Serious: Yes (Other)
  Sender: FDA-Public Use
  Company Number: US-ABBVIE-17K-163-1999283-00

PATIENT
  Age: 53 Year
  Sex: Male

DRUGS (4)
  1. LISINOPRIL. [Suspect]
     Active Substance: LISINOPRIL
     Indication: HYPERTENSION
     Route: 065
  2. HUMIRA [Suspect]
     Active Substance: ADALIMUMAB
     Route: 058
     Dates: start: 20170417, end: 20170424
  3. HUMIRA [Suspect]
     Active Substance: ADALIMUMAB
     Indication: PSORIATIC ARTHROPATHY
     Dosage: LOADING DOSE
     Route: 058
     Dates: start: 20170410, end: 20170410
  4. HUMIRA [Suspect]
     Active Substance: ADALIMUMAB
     Route: 058
     Dates: start: 20170501

REACTIONS (4)
  - Inappropriate schedule of drug administration [Recovered/Resolved]
  - Vascular rupture [Recovered/Resolved]
  - Hypotension [Recovered/Resolved]
  - Procedural complication [Recovered/Resolved]

NARRATIVE: CASE EVENT DATE: 2017
